FAERS Safety Report 5164758-9 (Version None)
Quarter: 2006Q4

REPORT INFORMATION
  Report Type: 
  Country: None (occurrence: None)
  Receive Date: 20061205
  Receipt Date: 20061127
  Transmission Date: 20070319
  Serious: Yes (Life-Threatening)
  Sender: FDA-Public Use
  Company Number: FR-GLAXOSMITHKLINE-B0448364A

PATIENT
  Age: 34 Year
  Sex: Female
  Weight: 52 kg

DRUGS (5)
  1. ABACAVIR [Suspect]
     Indication: HIV INFECTION
     Dosage: 1TAB PER DAY
     Route: 048
     Dates: start: 20061016, end: 20061023
  2. KALETRA [Suspect]
     Indication: HIV INFECTION
     Route: 048
     Dates: start: 20061018
  3. DALACINE [Suspect]
     Indication: CEREBRAL TOXOPLASMOSIS
     Route: 048
     Dates: start: 20061018, end: 20061023
  4. PYRIMETHAMINE TAB [Concomitant]
     Dates: start: 20060101
  5. SULFADIAZINE [Concomitant]
     Dates: start: 20060101

REACTIONS (6)
  - DRUG HYPERSENSITIVITY [None]
  - LUNG DISORDER [None]
  - MULTI-ORGAN FAILURE [None]
  - PYREXIA [None]
  - RASH MACULO-PAPULAR [None]
  - RESPIRATORY DISTRESS [None]
